FAERS Safety Report 17198917 (Version 8)
Quarter: 2022Q2

REPORT INFORMATION
  Report Type: Report from Study
  Country: CA (occurrence: CA)
  Receive Date: 20191225
  Receipt Date: 20220615
  Transmission Date: 20220721
  Serious: Yes (Other)
  Sender: FDA-Public Use
  Company Number: NVSC2019CA078688

PATIENT
  Age: 16 Year
  Sex: Female

DRUGS (8)
  1. METHOTREXATE [Suspect]
     Active Substance: METHOTREXATE
     Indication: Product used for unknown indication
     Dosage: UNK UNK, QW
     Route: 058
     Dates: start: 201906
  2. METHOTREXATE [Suspect]
     Active Substance: METHOTREXATE
     Dosage: 25 MG, UNKNOWN
     Route: 058
     Dates: start: 201907, end: 201911
  3. METHOTREXATE [Suspect]
     Active Substance: METHOTREXATE
     Dosage: 25 MG, QW
     Route: 058
     Dates: start: 201911
  4. INDOMETHACIN [Suspect]
     Active Substance: INDOMETHACIN
     Indication: Product used for unknown indication
     Dosage: UNK, QD
     Route: 048
     Dates: start: 20180713, end: 20190813
  5. RITUXAN [Concomitant]
     Active Substance: RITUXIMAB
     Indication: Product used for unknown indication
     Dosage: UNK
     Route: 065
     Dates: start: 201906, end: 201911
  6. CORTISONE [Concomitant]
     Active Substance: CORTISONE
     Indication: Product used for unknown indication
     Dosage: UNK UNK, UNKNOWN
     Route: 065
  7. AMITRIPTYLINE [Concomitant]
     Active Substance: AMITRIPTYLINE
     Indication: Product used for unknown indication
     Dosage: UNK UNK, UNKNOWN
     Route: 065
     Dates: start: 2017
  8. VIMOVO [Concomitant]
     Active Substance: ESOMEPRAZOLE MAGNESIUM\NAPROXEN
     Indication: Product used for unknown indication
     Dosage: UNK, UNKNOWN
     Route: 058
     Dates: start: 201906

REACTIONS (15)
  - Ankylosing spondylitis [Unknown]
  - Fatigue [Unknown]
  - Neck pain [Unknown]
  - Back pain [Unknown]
  - Arthralgia [Unknown]
  - Joint swelling [Unknown]
  - Discomfort [Unknown]
  - Musculoskeletal stiffness [Unknown]
  - Gastrointestinal haemorrhage [Unknown]
  - Enthesopathy [Unknown]
  - Liver disorder [Unknown]
  - Malaise [Unknown]
  - Drug intolerance [Unknown]
  - Therapeutic response decreased [Unknown]
  - Treatment failure [Unknown]

NARRATIVE: CASE EVENT DATE: 20191216
